FAERS Safety Report 8534071-8 (Version None)
Quarter: 2012Q3

REPORT INFORMATION
  Report Type: 
  Country: None (occurrence: None)
  Receive Date: 20120724
  Receipt Date: 20120720
  Transmission Date: 20120928
  Serious: Yes (Death, Hospitalization, Other)
  Sender: FDA-Public Use
  Company Number: CN-ROCHE-1090924

PATIENT
  Age: 62 Year
  Sex: Male

DRUGS (2)
  1. RIBAVIRIN [Concomitant]
     Indication: HEPATITIS C
     Dates: start: 20120304
  2. PEGASYS [Suspect]
     Indication: HEPATITIS C
     Dates: start: 20120304

REACTIONS (15)
  - HEPATIC ENCEPHALOPATHY [None]
  - ANAEMIA [None]
  - BLOOD GLUCOSE INCREASED [None]
  - ELECTROLYTE IMBALANCE [None]
  - WHITE BLOOD CELL COUNT DECREASED [None]
  - GINGIVAL BLEEDING [None]
  - DIARRHOEA [None]
  - HEPATIC FUNCTION ABNORMAL [None]
  - INFLUENZA LIKE ILLNESS [None]
  - PLATELET COUNT DECREASED [None]
  - TACHYPNOEA [None]
  - EPISTAXIS [None]
  - COMA [None]
  - VOMITING [None]
  - GASTROINTESTINAL HAEMORRHAGE [None]
